FAERS Safety Report 11076073 (Version 2)
Quarter: 2015Q2

REPORT INFORMATION
  Report Type: Spontaneous
  Country: DE (occurrence: DE)
  Receive Date: 20150429
  Receipt Date: 20150522
  Transmission Date: 20150821
  Serious: Yes (Hospitalization, Other)
  Sender: FDA-Public Use
  Company Number: DE-UCBSA-2015012668

PATIENT
  Sex: Male

DRUGS (5)
  1. PRAMIPEXOL [Concomitant]
     Active Substance: PRAMIPEXOLE
     Indication: RESTLESS LEGS SYNDROME
     Dosage: UNK
  2. NEUPRO [Suspect]
     Active Substance: ROTIGOTINE
     Dosage: 3 MG, ONCE DAILY (QD)
     Route: 062
     Dates: start: 201504, end: 20150409
  3. NEUPRO [Suspect]
     Active Substance: ROTIGOTINE
     Dosage: 2 MG, ONCE DAILY (QD)
     Route: 062
     Dates: start: 201504, end: 201504
  4. CANDESARTAN [Concomitant]
     Active Substance: CANDESARTAN
     Indication: BLOOD PRESSURE SYSTOLIC
     Dosage: UNK
  5. NEUPRO [Suspect]
     Active Substance: ROTIGOTINE
     Indication: RESTLESS LEGS SYNDROME
     Dosage: 1 MG
     Route: 062
     Dates: start: 20150331, end: 201504

REACTIONS (5)
  - Electrocardiogram P wave abnormal [Unknown]
  - Restless legs syndrome [Unknown]
  - Hypertensive crisis [Recovering/Resolving]
  - General physical health deterioration [Unknown]
  - Chest pain [Recovered/Resolved]

NARRATIVE: CASE EVENT DATE: 2015
